FAERS Safety Report 4742158-0 (Version None)
Quarter: 2005Q3

REPORT INFORMATION
  Report Type: 
  Country: None (occurrence: None)
  Receive Date: 20050811
  Receipt Date: 20050307
  Transmission Date: 20060218
  Serious: No
  Sender: FDA-Public Use
  Company Number: US-GLAXOSMITHKLINE-A0548606A

PATIENT
  Sex: Female

DRUGS (4)
  1. PAXIL CR [Suspect]
     Dosage: 12.5MG PER DAY
     Route: 048
     Dates: start: 20050113, end: 20050304
  2. DIAZEPAM [Concomitant]
  3. DIGOXIN [Concomitant]
  4. ZETIA [Concomitant]

REACTIONS (1)
  - INSOMNIA [None]
